FAERS Safety Report 9123481 (Version 1)
Quarter: 2013Q1

REPORT INFORMATION
  Report Type: Spontaneous
  Country: US (occurrence: US)
  Receive Date: 20130227
  Receipt Date: 20130227
  Transmission Date: 20140127
  Serious: No
  Sender: FDA-Public Use
  Company Number: US-009507513-1302USA012341

PATIENT
  Age: 65 Year
  Sex: Female

DRUGS (6)
  1. JANUVIA [Suspect]
     Dosage: 50 MG, QD
     Route: 048
     Dates: start: 201202
  2. PRAVASTATIN SODIUM [Concomitant]
  3. ACARBOSE [Concomitant]
  4. MELOXICAM [Concomitant]
  5. LISINOPRIL [Concomitant]
     Route: 048
  6. GLIMEPIRIDE [Concomitant]

REACTIONS (2)
  - Back pain [Not Recovered/Not Resolved]
  - Abdominal pain upper [Not Recovered/Not Resolved]
